FAERS Safety Report 7009383-X (Version None)
Quarter: 2010Q3

REPORT INFORMATION
  Report Type: 
  Country: None (occurrence: None)
  Receive Date: 20100923
  Receipt Date: 20100914
  Transmission Date: 20110219
  Serious: Yes (Hospitalization, Other)
  Sender: FDA-Public Use
  Company Number: PH-ELI_LILLY_AND_COMPANY-PH201008002946

PATIENT
  Sex: Male

DRUGS (4)
  1. HUMALOG MIX 75/25 [Suspect]
     Dosage: 20 U, EACH MORNING
     Route: 065
  2. HUMALOG MIX 75/25 [Suspect]
     Dosage: 10 IU, EACH EVENING
     Route: 065
  3. HUMALOG MIX 75/25 [Suspect]
     Dosage: 48 IU, EACH MORNING
     Route: 065
     Dates: start: 20100725
  4. HUMALOG MIX 75/25 [Suspect]
     Dosage: 40 IU, EACH EVENING
     Route: 065
     Dates: start: 20100725

REACTIONS (4)
  - COMA [None]
  - DRUG PRESCRIBING ERROR [None]
  - HOSPITALISATION [None]
  - HYPOGLYCAEMIC UNCONSCIOUSNESS [None]
